FAERS Safety Report 5309577-5 (Version None)
Quarter: 2007Q2

REPORT INFORMATION
  Report Type: 
  Country: None (occurrence: None)
  Receive Date: 20070425
  Receipt Date: 20070425
  Transmission Date: 20071010
  Serious: Yes (Other)
  Sender: FDA-Public Use
  Company Number: None

PATIENT
  Age: 50 Year
  Sex: Male
  Weight: 97.0698 kg

DRUGS (5)
  1. VIOXX [Suspect]
     Indication: ROTATOR CUFF SYNDROME
     Dosage: 25 MG  DAILY  PO
     Route: 048
     Dates: start: 20011013, end: 20020215
  2. ATENOLOL [Concomitant]
  3. GENL ANESTHESIA [Concomitant]
  4. PAXIL [Concomitant]
  5. VICODIN [Concomitant]

REACTIONS (3)
  - FLUID RETENTION [None]
  - OEDEMA [None]
  - WEIGHT INCREASED [None]
